FAERS Safety Report 9617738 (Version 2)
Quarter: 2013Q4

REPORT INFORMATION
  Report Type: Spontaneous
  Country: NL (occurrence: NL)
  Receive Date: 20131011
  Receipt Date: 20131011
  Transmission Date: 20140711
  Serious: Yes (Other)
  Sender: FDA-Public Use
  Company Number: PHHY2013NL110434

PATIENT
  Sex: Female
  Weight: 84.5 kg

DRUGS (5)
  1. ENALAPRIL MALEATE SANDOZ [Suspect]
     Dosage: 20 MG, QD
  2. METFORMINE [Concomitant]
     Dosage: 1 DF, QD
  3. HYDROCHLOORTHIAZIDE [Concomitant]
     Dosage: 1 DF, QD
  4. OMEPRAZOLE [Concomitant]
     Dosage: 1 DF, QD
  5. SIMVASTATINE [Concomitant]
     Dosage: 1 DF, QD

REACTIONS (2)
  - Parapsoriasis [Not Recovered/Not Resolved]
  - Skin exfoliation [Not Recovered/Not Resolved]
